FAERS Safety Report 9668023 (Version 1)
Quarter: 2013Q4

REPORT INFORMATION
  Report Type: Spontaneous
  Country: JP (occurrence: JP)
  Receive Date: 20131104
  Receipt Date: 20131104
  Transmission Date: 20140711
  Serious: Yes (Other)
  Sender: FDA-Public Use
  Company Number: JP-GLAXOSMITHKLINE-B0938657A

PATIENT
  Age: 56 Year
  Sex: Male

DRUGS (7)
  1. MELPHALAN [Suspect]
     Indication: ACUTE MYELOID LEUKAEMIA
     Dosage: 140MGM2 PER DAY
     Route: 065
  2. FLUDARABINE [Concomitant]
     Indication: SURGICAL PRECONDITIONING
  3. TACROLIMUS [Concomitant]
     Indication: PROPHYLAXIS
  4. VORICONAZOLE [Concomitant]
  5. AMPHOTERICIN B [Concomitant]
  6. DAUNORUBICIN [Concomitant]
  7. IRRADIATION [Concomitant]

REACTIONS (3)
  - Pre-engraftment immune reaction [Recovered/Resolved]
  - Histiocytosis haematophagic [Recovered/Resolved]
  - Off label use [Recovered/Resolved]
